FAERS Safety Report 20668513 (Version 1)
Quarter: 2022Q2

REPORT INFORMATION
  Report Type: Spontaneous
  Country: US (occurrence: None)
  Receive Date: 20220401
  Receipt Date: 20220401
  Transmission Date: 20220721
  Serious: No
  Sender: FDA-Public Use
  Company Number: None

PATIENT
  Age: 39 Year
  Sex: Male

DRUGS (4)
  1. TESTOSTERONE CYPIONATE [Suspect]
     Active Substance: TESTOSTERONE CYPIONATE
     Indication: Hypogonadism
     Dosage: 0.3 ML TWICE WEEKLY SUBCUTANEOUS?
     Route: 058
     Dates: start: 20210110
  2. ANASTROZOLE [Concomitant]
     Active Substance: ANASTROZOLE
     Dates: start: 20210110
  3. Clomiphene 50mg [Concomitant]
     Dates: start: 20210110
  4. Pregnenolone 20mg [Concomitant]
     Dates: start: 20210110

REACTIONS (4)
  - Injection site bruising [None]
  - Injection site erythema [None]
  - Recalled product administered [None]
  - Wrong technique in device usage process [None]

NARRATIVE: CASE EVENT DATE: 20220329
